FAERS Safety Report 4728633-3 (Version None)
Quarter: 2005Q3

REPORT INFORMATION
  Report Type: 
  Country: None (occurrence: None)
  Receive Date: 20050727
  Receipt Date: 20050718
  Transmission Date: 20060218
  Serious: Yes (Death, Other)
  Sender: FDA-Public Use
  Company Number: 2005-07-1434

PATIENT
  Age: 56 Year
  Sex: Male

DRUGS (14)
  1. INTRON A [Suspect]
     Indication: LYMPHOMA
  2. CYCLOPHOSPHAMIDE [Suspect]
  3. DOXORUBICIN HCL [Suspect]
  4. VINCRISTINE [Suspect]
  5. DEXAMETHASONE [Suspect]
  6. BLEOMYCIN [Suspect]
  7. ETOPOSIDE [Suspect]
     Indication: LYMPHOMA
  8. METHYLPREDNISOLONE 16MG TAB [Suspect]
     Indication: LYMPHOMA
  9. CYTARABINE [Suspect]
     Indication: LYMPHOMA
  10. CISPLATIN [Suspect]
     Indication: LYMPHOMA
  11. MITOXANTRONE [Suspect]
     Indication: LYMPHOMA
  12. PREDNISONE [Suspect]
     Indication: LYMPHOMA
  13. PROCARBAZINE [Suspect]
     Indication: LYMPHOMA
  14. RITUXIMAB [Suspect]
     Indication: LYMPHOMA
     Dosage: 375 MG/M^2 ; 6 DOSE(S)

REACTIONS (2)
  - MYELODYSPLASTIC SYNDROME [None]
  - REFRACTORY ANAEMIA WITH AN EXCESS OF BLASTS [None]
